FAERS Safety Report 9431552 (Version 1)
Quarter: 2013Q3

REPORT INFORMATION
  Report Type: Spontaneous
  Country: JP (occurrence: JP)
  Receive Date: 20130731
  Receipt Date: 20130731
  Transmission Date: 20140515
  Serious: Yes (Death, Hospitalization)
  Sender: FDA-Public Use
  Company Number: PHHY2013JP079790

PATIENT
  Age: 66 Year
  Sex: Female

DRUGS (1)
  1. CEFTRIAXONE [Suspect]
     Indication: NEUROSYPHILIS

REACTIONS (9)
  - Acquired haemophilia [Fatal]
  - Muscle haemorrhage [Fatal]
  - Gingival bleeding [Fatal]
  - Epistaxis [Fatal]
  - Peritoneal haemorrhage [Fatal]
  - Shock haemorrhagic [Fatal]
  - Depressed level of consciousness [Fatal]
  - Shock [Fatal]
  - Intra-abdominal haematoma [Fatal]
